FAERS Safety Report 19106910 (Version 1)
Quarter: 2021Q2

REPORT INFORMATION
  Report Type: Spontaneous
  Country: NL (occurrence: NL)
  Receive Date: 20210408
  Receipt Date: 20210408
  Transmission Date: 20210717
  Serious: Yes (Other)
  Sender: FDA-Public Use
  Company Number: NL-PFIZER INC-2021370597

PATIENT
  Sex: Female
  Weight: 56 kg

DRUGS (1)
  1. PREGABALIN. [Suspect]
     Active Substance: PREGABALIN
     Indication: NEURALGIA
     Dosage: 25 MG, 1X/DAY
     Dates: start: 20201231

REACTIONS (2)
  - Arrhythmia [Not Recovered/Not Resolved]
  - Blood pressure decreased [Not Recovered/Not Resolved]
